FAERS Safety Report 11693768 (Version 25)
Quarter: 2019Q4

REPORT INFORMATION
  Report Type: Spontaneous
  Country: US (occurrence: US)
  Receive Date: 20151103
  Receipt Date: 20191206
  Transmission Date: 20200122
  Serious: Yes (Death, Hospitalization, Other)
  Sender: FDA-Public Use
  Company Number: US-ACTELION PHARMACEUTICALS US, INC.-A-US2015-126541

PATIENT
  Age: 51 Year
  Sex: Female
  Weight: 54.88 kg

DRUGS (23)
  1. DIAZEPAM. [Concomitant]
     Active Substance: DIAZEPAM
  2. OPSUMIT [Suspect]
     Active Substance: MACITENTAN
     Indication: PULMONARY HYPERTENSION
     Dosage: 10 MG, QD
     Route: 048
     Dates: start: 20151022
  3. BUPROPION. [Concomitant]
     Active Substance: BUPROPION
  4. ONDANSETRON [Concomitant]
     Active Substance: ONDANSETRON
  5. MULTIVITAMIN [Concomitant]
     Active Substance: VITAMINS
  6. HYDROCODONE BITARTRATE AND ACETAMINOPHEN [Concomitant]
     Active Substance: ACETAMINOPHEN\HYDROCODONE BITARTRATE
  7. SPIRONOLACTONE. [Concomitant]
     Active Substance: SPIRONOLACTONE
  8. NEURONTIN [Concomitant]
     Active Substance: GABAPENTIN
     Dosage: 100 MG, TID
  9. CYCLOBENZAPRINE. [Concomitant]
     Active Substance: CYCLOBENZAPRINE
  10. PRILOSEC [Concomitant]
     Active Substance: OMEPRAZOLE MAGNESIUM
     Dosage: 40 MG, UNK
     Dates: start: 2008
  11. VALIUM [Concomitant]
     Active Substance: DIAZEPAM
     Indication: DIZZINESS
     Dosage: 5 MG, Q6HRS PRN
  12. PROZAC [Concomitant]
     Active Substance: FLUOXETINE HYDROCHLORIDE
     Dosage: 40 MG, TID
  13. PRAVASTATIN. [Concomitant]
     Active Substance: PRAVASTATIN
     Dosage: UNK
     Dates: start: 201208
  14. FLOLAN [Suspect]
     Active Substance: EPOPROSTENOL SODIUM
     Indication: PULMONARY HYPERTENSION
     Dosage: 35.5 NG/KG, PER MIN
     Route: 042
     Dates: start: 19990112
  15. GABAPENTIN. [Concomitant]
     Active Substance: GABAPENTIN
     Dosage: UNK
     Dates: start: 2015
  16. POTASSIUM CHLORIDE. [Concomitant]
     Active Substance: POTASSIUM CHLORIDE
     Dosage: UNK
     Dates: start: 2015
  17. FLOLAN [Suspect]
     Active Substance: EPOPROSTENOL SODIUM
     Dosage: 22 NG/KG, PER MIN
     Route: 042
  18. REVATIO [Concomitant]
     Active Substance: SILDENAFIL CITRATE
  19. WELLBUTRIN [Concomitant]
     Active Substance: BUPROPION HYDROCHLORIDE
     Dosage: 150 MG, BID
     Dates: start: 2013
  20. FLUOXETINE [Concomitant]
     Active Substance: FLUOXETINE HYDROCHLORIDE
  21. OMEPRAZOLE. [Concomitant]
     Active Substance: OMEPRAZOLE
  22. FUROSEMIDE. [Concomitant]
     Active Substance: FUROSEMIDE
  23. OXYCODONE W/APAP [Concomitant]
     Active Substance: ACETAMINOPHEN\OXYCODONE HYDROCHLORIDE

REACTIONS (34)
  - Nausea [Unknown]
  - Cough [Not Recovered/Not Resolved]
  - Device malfunction [Not Recovered/Not Resolved]
  - Pain in extremity [Recovered/Resolved]
  - Cerebral haemorrhage [Recovered/Resolved]
  - Catheter site swelling [Unknown]
  - Subarachnoid haemorrhage [Recovered/Resolved]
  - Presyncope [Not Recovered/Not Resolved]
  - Eye pain [Not Recovered/Not Resolved]
  - Contusion [Recovered/Resolved]
  - Vascular device infection [Unknown]
  - Catheter site erythema [Unknown]
  - Fluid overload [Recovered/Resolved]
  - Hypotension [Unknown]
  - Hypoaesthesia [Recovered/Resolved]
  - Seizure [Recovered/Resolved]
  - Pulmonary arterial hypertension [Unknown]
  - Syncope [Recovered/Resolved]
  - Ocular hyperaemia [Not Recovered/Not Resolved]
  - Fall [Recovered/Resolved]
  - Nervous system disorder [Unknown]
  - Subdural haematoma [Recovered/Resolved]
  - Headache [Unknown]
  - Dizziness [Unknown]
  - Catheter site discharge [Unknown]
  - Abdominal pain upper [Unknown]
  - Death [Fatal]
  - Muscular weakness [Recovered/Resolved]
  - Right ventricular failure [Recovered/Resolved]
  - Oedema [Recovered/Resolved]
  - Chest pain [Unknown]
  - Disorientation [Not Recovered/Not Resolved]
  - Facial pain [Recovered/Resolved]
  - Product dose omission [Unknown]

NARRATIVE: CASE EVENT DATE: 20151026
